FAERS Safety Report 4412866-X (Version None)
Quarter: 2004Q3

REPORT INFORMATION
  Report Type: 
  Country: None (occurrence: None)
  Receive Date: 20040727
  Receipt Date: 20040713
  Transmission Date: 20050211
  Serious: Yes (Death)
  Sender: FDA-Public Use
  Company Number: US-SHR-03-017540

PATIENT

DRUGS (1)
  1. MAGNEVIST [Suspect]
     Dates: start: 20030101, end: 20030101

REACTIONS (1)
  - PULMONARY EMBOLISM [None]
